FAERS Safety Report 18804056 (Version 1)
Quarter: 2021Q1

REPORT INFORMATION
  Report Type: Spontaneous
  Country: US (occurrence: US)
  Receive Date: 20210128
  Receipt Date: 20210128
  Transmission Date: 20210419
  Serious: No
  Sender: FDA-Public Use
  Company Number: US-MILLICENT HOLDINGS LTD.-MILL20210019

PATIENT
  Sex: Female

DRUGS (3)
  1. INTRAROSA [Suspect]
     Active Substance: PRASTERONE
     Indication: POSTMENOPAUSE
  2. INTRAROSA [Suspect]
     Active Substance: PRASTERONE
     Indication: HORMONE REPLACEMENT THERAPY
  3. INTRAROSA [Suspect]
     Active Substance: PRASTERONE
     Indication: URETHRAL PROLAPSE
     Dosage: UNKNOWN
     Route: 067

REACTIONS (1)
  - Off label use [Unknown]
